FAERS Safety Report 8135081-5 (Version None)
Quarter: 2012Q1

REPORT INFORMATION
  Report Type: 
  Country: None (occurrence: None)
  Receive Date: 20120214
  Receipt Date: 20120210
  Transmission Date: 20120608
  Serious: No
  Sender: FDA-Public Use
  Company Number: US-BAYER-2012-014236

PATIENT
  Age: 47 Year
  Sex: Male

DRUGS (1)
  1. MAGNEVIST [Suspect]
     Dosage: 20 ML, UNK
     Route: 042
     Dates: start: 20120210

REACTIONS (1)
  - PRURITUS [None]
